FAERS Safety Report 4703822-2 (Version None)
Quarter: 2005Q2

REPORT INFORMATION
  Report Type: 
  Country: None (occurrence: None)
  Receive Date: 20050630
  Receipt Date: 20050420
  Transmission Date: 20051028
  Serious: No
  Sender: FDA-Public Use
  Company Number: US-GLAXOSMITHKLINE-A0555041A

PATIENT
  Age: 79 Year
  Sex: Female

DRUGS (5)
  1. FLOVENT [Suspect]
     Indication: ASTHMA
     Dosage: 110MCG TWICE PER DAY
     Route: 055
  2. ALBUTEROL [Concomitant]
  3. ANTI-HISTAMINE TAB [Concomitant]
  4. NASACORT AQ [Concomitant]
  5. ALLERGY SHOT [Concomitant]

REACTIONS (1)
  - DYSPHONIA [None]
